FAERS Safety Report 17961256 (Version 3)
Quarter: 2020Q4

REPORT INFORMATION
  Report Type: Report from Study
  Country: CN (occurrence: CN)
  Receive Date: 20200630
  Receipt Date: 20201126
  Transmission Date: 20210113
  Serious: Yes (Hospitalization)
  Sender: FDA-Public Use
  Company Number: CN-ROCHE-2632142

PATIENT
  Age: 50 Year
  Sex: Male
  Weight: 79 kg

DRUGS (138)
  1. ATEZOLIZUMAB. [Suspect]
     Active Substance: ATEZOLIZUMAB
     Indication: NON-SMALL CELL LUNG CANCER METASTATIC
     Dosage: MOST RECENT DOSE ON 29/MAY/2020
     Route: 042
     Dates: start: 20200324
  2. POTASSIUM CHLORIDE. [Concomitant]
     Active Substance: POTASSIUM CHLORIDE
     Dates: start: 20200615, end: 20200615
  3. POTASSIUM CHLORIDE. [Concomitant]
     Active Substance: POTASSIUM CHLORIDE
     Dates: start: 20200702, end: 20200702
  4. POTASSIUM CHLORIDE. [Concomitant]
     Active Substance: POTASSIUM CHLORIDE
     Dates: start: 20200616, end: 20200709
  5. POTASSIUM CHLORIDE. [Concomitant]
     Active Substance: POTASSIUM CHLORIDE
     Dates: start: 20200727, end: 20200802
  6. POTASSIUM CHLORIDE. [Concomitant]
     Active Substance: POTASSIUM CHLORIDE
     Dates: start: 20200711, end: 20200722
  7. INSULIN [Concomitant]
     Active Substance: INSULIN NOS
     Dosage: 8 U
     Dates: start: 20200702, end: 20200702
  8. INSULIN [Concomitant]
     Active Substance: INSULIN NOS
     Dosage: 18 U
     Dates: start: 20200709, end: 20200709
  9. AMBROXOL HYDROCHLORIDE [Concomitant]
     Active Substance: AMBROXOL HYDROCHLORIDE
     Dates: start: 20200710, end: 20200710
  10. VITAMIN C [Concomitant]
     Active Substance: ASCORBIC ACID
     Dates: start: 20200622, end: 20200629
  11. COMPOUND IPRATROPIUM BROMIDE [Concomitant]
     Active Substance: IPRATROPIUM BROMIDE
     Dates: start: 20200710, end: 20200710
  12. FUROSEMIDE. [Concomitant]
     Active Substance: FUROSEMIDE
     Dates: start: 20200711, end: 20200712
  13. FUROSEMIDE. [Concomitant]
     Active Substance: FUROSEMIDE
     Dates: start: 20200805, end: 20200805
  14. FUROSEMIDE. [Concomitant]
     Active Substance: FUROSEMIDE
     Dates: start: 20200731, end: 20200805
  15. HYDROMORPHONE HYDROCHLORIDE. [Concomitant]
     Active Substance: HYDROMORPHONE HYDROCHLORIDE
     Dates: start: 20200718, end: 20200718
  16. HYDROMORPHONE HYDROCHLORIDE. [Concomitant]
     Active Substance: HYDROMORPHONE HYDROCHLORIDE
     Dates: start: 20200725, end: 20200725
  17. HYDROMORPHONE HYDROCHLORIDE. [Concomitant]
     Active Substance: HYDROMORPHONE HYDROCHLORIDE
     Dates: start: 20200726, end: 20200727
  18. HYDROMORPHONE HYDROCHLORIDE. [Concomitant]
     Active Substance: HYDROMORPHONE HYDROCHLORIDE
     Dates: start: 20200729, end: 20200729
  19. DOPAMINE HYDROCHLORIDE. [Concomitant]
     Active Substance: DOPAMINE HYDROCHLORIDE
     Dates: start: 20200807, end: 20200807
  20. GLUCOSE [Concomitant]
     Active Substance: DEXTROSE
     Dates: start: 20200615, end: 20200615
  21. ORNIDAZOLE;SODIUM CHLORIDE [Concomitant]
     Dates: start: 20200612, end: 20200612
  22. FAT EMULSION, AMINO ACIDS (17) AND GLUCOSE (11%) [Concomitant]
     Dates: start: 20200612, end: 20200612
  23. FAT EMULSION, AMINO ACIDS (17) AND GLUCOSE (11%) [Concomitant]
     Dates: start: 20200614, end: 20200614
  24. FAT EMULSION, AMINO ACIDS (17) AND GLUCOSE (11%) [Concomitant]
     Dates: start: 20200709, end: 20200709
  25. POTASSIUM CHLORIDE. [Concomitant]
     Active Substance: POTASSIUM CHLORIDE
     Dates: start: 20200728, end: 20200728
  26. POTASSIUM CHLORIDE. [Concomitant]
     Active Substance: POTASSIUM CHLORIDE
     Dates: start: 20200803, end: 20200804
  27. POTASSIUM CHLORIDE. [Concomitant]
     Active Substance: POTASSIUM CHLORIDE
     Dates: start: 20200723, end: 20200725
  28. INSULIN [Concomitant]
     Active Substance: INSULIN NOS
     Dosage: 16 U
     Dates: start: 20200612, end: 20200612
  29. INSULIN [Concomitant]
     Active Substance: INSULIN NOS
     Dosage: 16 U
     Dates: start: 20200614, end: 20200614
  30. MANNITOL. [Concomitant]
     Active Substance: MANNITOL
     Dates: start: 20200630, end: 20200711
  31. VITAMIN C [Concomitant]
     Active Substance: ASCORBIC ACID
     Dates: start: 20200712, end: 20200714
  32. REDUCED GLUTATHIONE SODIUM [Concomitant]
     Active Substance: GLUTATHIONE
     Dates: start: 20200630, end: 20200630
  33. PROMETHAZINE HYDROCHLORIDE. [Concomitant]
     Active Substance: PROMETHAZINE HYDROCHLORIDE
     Dates: start: 20200709, end: 20200709
  34. PROMETHAZINE HYDROCHLORIDE. [Concomitant]
     Active Substance: PROMETHAZINE HYDROCHLORIDE
     Dates: start: 20200714, end: 20200714
  35. PROMETHAZINE HYDROCHLORIDE. [Concomitant]
     Active Substance: PROMETHAZINE HYDROCHLORIDE
     Dates: start: 20200720, end: 20200720
  36. PROMETHAZINE HYDROCHLORIDE. [Concomitant]
     Active Substance: PROMETHAZINE HYDROCHLORIDE
     Dates: start: 20200727, end: 20200727
  37. BUDESONIDE. [Concomitant]
     Active Substance: BUDESONIDE
     Dates: start: 20200728, end: 20200728
  38. BUDESONIDE. [Concomitant]
     Active Substance: BUDESONIDE
     Dates: start: 20200711, end: 20200721
  39. FUROSEMIDE. [Concomitant]
     Active Substance: FUROSEMIDE
     Dates: start: 20200718, end: 20200718
  40. FUROSEMIDE. [Concomitant]
     Active Substance: FUROSEMIDE
     Dates: start: 20200726, end: 20200730
  41. HYDROMORPHONE HYDROCHLORIDE. [Concomitant]
     Active Substance: HYDROMORPHONE HYDROCHLORIDE
     Dates: start: 20200801, end: 20200801
  42. HYDROMORPHONE HYDROCHLORIDE. [Concomitant]
     Active Substance: HYDROMORPHONE HYDROCHLORIDE
     Dates: start: 20200803, end: 20200804
  43. DIAZEPAM. [Concomitant]
     Active Substance: DIAZEPAM
     Dates: start: 20200804, end: 20200804
  44. GLUCOSE [Concomitant]
     Active Substance: DEXTROSE
     Dates: start: 20200702, end: 20200702
  45. POTASSIUM CHLORIDE. [Concomitant]
     Active Substance: POTASSIUM CHLORIDE
     Dates: start: 20200726, end: 20200726
  46. POTASSIUM CHLORIDE. [Concomitant]
     Active Substance: POTASSIUM CHLORIDE
     Dates: start: 20200802, end: 20200802
  47. INSULIN [Concomitant]
     Active Substance: INSULIN NOS
     Dates: start: 20200803, end: 20200805
  48. INSULIN [Concomitant]
     Active Substance: INSULIN NOS
     Dates: start: 20200806, end: 20200807
  49. MANNITOL. [Concomitant]
     Active Substance: MANNITOL
     Dates: start: 20200612, end: 20200613
  50. AMBROXOL HYDROCHLORIDE [Concomitant]
     Active Substance: AMBROXOL HYDROCHLORIDE
     Dates: start: 20200612, end: 20200612
  51. OCTREOTIDE ACETATE. [Concomitant]
     Active Substance: OCTREOTIDE ACETATE
     Dates: start: 20200702, end: 20200710
  52. EPINEPHRINE HYDROCHLORIDE. [Concomitant]
     Active Substance: EPINEPHRINE HYDROCHLORIDE
     Dates: start: 20200807, end: 20200807
  53. BUDESONIDE. [Concomitant]
     Active Substance: BUDESONIDE
     Dates: start: 20200710, end: 20200710
  54. BUDESONIDE. [Concomitant]
     Active Substance: BUDESONIDE
     Dates: start: 20200729, end: 20200729
  55. COMPOUND IPRATROPIUM BROMIDE [Concomitant]
     Active Substance: IPRATROPIUM BROMIDE
     Dates: start: 20200711, end: 20200721
  56. HYDROMORPHONE HYDROCHLORIDE. [Concomitant]
     Active Substance: HYDROMORPHONE HYDROCHLORIDE
     Dates: start: 20200715, end: 20200717
  57. HYDROMORPHONE HYDROCHLORIDE. [Concomitant]
     Active Substance: HYDROMORPHONE HYDROCHLORIDE
     Dates: start: 20200730, end: 20200730
  58. RECOMBINANT HUMAN INTERLEUKIN-11 [Concomitant]
     Active Substance: OPRELVEKIN
     Dates: start: 20200728, end: 20200807
  59. DOPAMINE HYDROCHLORIDE. [Concomitant]
     Active Substance: DOPAMINE HYDROCHLORIDE
     Dates: start: 20200807, end: 20200807
  60. EUTHYROX [Concomitant]
     Active Substance: LEVOTHYROXINE SODIUM
     Dates: start: 20200612, end: 20200807
  61. DISODIUM CANTHARIDINATE;VITAMIN B6 [Concomitant]
     Dates: start: 20200611, end: 20200611
  62. SODIUM POTASSIUM MAGNESIUM CALCIUM AND GLUCOSE [Concomitant]
     Dates: start: 20200615, end: 20200615
  63. POTASSIUM CHLORIDE. [Concomitant]
     Active Substance: POTASSIUM CHLORIDE
     Dates: start: 20200614, end: 20200614
  64. POTASSIUM CHLORIDE. [Concomitant]
     Active Substance: POTASSIUM CHLORIDE
     Dates: start: 20200727, end: 20200727
  65. INSULIN [Concomitant]
     Active Substance: INSULIN NOS
     Dates: start: 20200726, end: 20200726
  66. MANNITOL. [Concomitant]
     Active Substance: MANNITOL
     Dates: start: 20200806, end: 20200806
  67. MANNITOL. [Concomitant]
     Active Substance: MANNITOL
     Dates: start: 20200613, end: 20200613
  68. AMBROXOL HYDROCHLORIDE [Concomitant]
     Active Substance: AMBROXOL HYDROCHLORIDE
     Dates: start: 20200725, end: 20200725
  69. AMBROXOL HYDROCHLORIDE [Concomitant]
     Active Substance: AMBROXOL HYDROCHLORIDE
     Dates: start: 20200613, end: 20200630
  70. AMBROXOL HYDROCHLORIDE [Concomitant]
     Active Substance: AMBROXOL HYDROCHLORIDE
     Dates: start: 20200727, end: 20200727
  71. OCTREOTIDE ACETATE. [Concomitant]
     Active Substance: OCTREOTIDE ACETATE
     Dates: start: 20200623, end: 20200623
  72. RECOMBINANT HUMAN INTERLEUKIN-11 [Concomitant]
     Active Substance: OPRELVEKIN
     Dates: start: 20200727, end: 20200727
  73. CALCIUM GLUCONATE. [Concomitant]
     Active Substance: CALCIUM GLUCONATE
     Dates: start: 20200805, end: 20200805
  74. DOPAMINE HYDROCHLORIDE. [Concomitant]
     Active Substance: DOPAMINE HYDROCHLORIDE
     Dates: start: 20200807, end: 20200807
  75. NIKETHAMIDE [Concomitant]
     Active Substance: NIKETHAMIDE
     Dates: start: 20200807, end: 20200807
  76. SODIUM VALPROATE [Concomitant]
     Active Substance: VALPROATE SODIUM
     Dates: start: 20200612, end: 20200630
  77. ORNIDAZOLE;SODIUM CHLORIDE [Concomitant]
     Dates: start: 20200610, end: 20200610
  78. SODIUM POTASSIUM MAGNESIUM CALCIUM AND GLUCOSE [Concomitant]
     Dates: start: 20200806, end: 20200807
  79. SODIUM POTASSIUM MAGNESIUM CALCIUM AND GLUCOSE [Concomitant]
     Dates: start: 20200616, end: 20200702
  80. MANNITOL. [Concomitant]
     Active Substance: MANNITOL
     Dates: start: 20200614, end: 20200629
  81. REDUCED GLUTATHIONE SODIUM [Concomitant]
     Active Substance: GLUTATHIONE
     Dates: start: 20200727, end: 20200807
  82. REDUCED GLUTATHIONE SODIUM [Concomitant]
     Active Substance: GLUTATHIONE
     Dates: start: 20200701, end: 20200713
  83. REDUCED GLUTATHIONE SODIUM [Concomitant]
     Active Substance: GLUTATHIONE
     Dates: start: 20200715, end: 20200725
  84. PROMETHAZINE HYDROCHLORIDE. [Concomitant]
     Active Substance: PROMETHAZINE HYDROCHLORIDE
     Dates: start: 20200802, end: 20200802
  85. COMPOUND IPRATROPIUM BROMIDE [Concomitant]
     Active Substance: IPRATROPIUM BROMIDE
     Dates: start: 20200725, end: 20200725
  86. HYDROMORPHONE HYDROCHLORIDE. [Concomitant]
     Active Substance: HYDROMORPHONE HYDROCHLORIDE
     Dates: start: 20200731, end: 20200731
  87. HYDROMORPHONE HYDROCHLORIDE. [Concomitant]
     Active Substance: HYDROMORPHONE HYDROCHLORIDE
     Dates: start: 20200802, end: 20200802
  88. METOPROLOL TARTRATE. [Concomitant]
     Active Substance: METOPROLOL TARTRATE
     Dates: start: 20200719, end: 20200807
  89. DIAZEPAM. [Concomitant]
     Active Substance: DIAZEPAM
     Dates: start: 20200807, end: 20200807
  90. LEVOTHYROXINE SODIUM. [Concomitant]
     Active Substance: LEVOTHYROXINE SODIUM
     Dosage: 1.5 TAB
     Dates: start: 201911
  91. POTASSIUM CHLORIDE. [Concomitant]
     Active Substance: POTASSIUM CHLORIDE
     Dates: start: 20200803, end: 20200805
  92. INSULIN [Concomitant]
     Active Substance: INSULIN NOS
     Dosage: 16 U
     Dates: start: 20200727, end: 20200802
  93. INSULIN [Concomitant]
     Active Substance: INSULIN NOS
     Dates: start: 20200711, end: 20200722
  94. MANNITOL. [Concomitant]
     Active Substance: MANNITOL
     Dates: start: 20200712, end: 20200725
  95. AMBROXOL HYDROCHLORIDE [Concomitant]
     Active Substance: AMBROXOL HYDROCHLORIDE
     Dates: start: 20200726, end: 20200726
  96. VITAMIN C [Concomitant]
     Active Substance: ASCORBIC ACID
     Dates: start: 20200618, end: 20200619
  97. VITAMIN C [Concomitant]
     Active Substance: ASCORBIC ACID
     Dates: start: 20200620, end: 20200621
  98. EPINEPHRINE HYDROCHLORIDE. [Concomitant]
     Active Substance: EPINEPHRINE HYDROCHLORIDE
     Dates: start: 20200807, end: 20200807
  99. BUDESONIDE. [Concomitant]
     Active Substance: BUDESONIDE
     Dates: start: 20200725, end: 20200725
  100. BUDESONIDE. [Concomitant]
     Active Substance: BUDESONIDE
     Dates: start: 20200803, end: 20200807
  101. FUROSEMIDE. [Concomitant]
     Active Substance: FUROSEMIDE
     Dates: start: 20200722, end: 20200722
  102. POLYGELINE [Concomitant]
     Active Substance: POLYGELINE
     Dates: start: 20200807, end: 20200807
  103. FENTANYL TRANSDERMAL SYSTEM [Concomitant]
     Active Substance: FENTANYL
     Dates: start: 20200619, end: 20200807
  104. GLUCOSE [Concomitant]
     Active Substance: DEXTROSE
     Dates: start: 20200726, end: 20200726
  105. GLUCOSE [Concomitant]
     Active Substance: DEXTROSE
     Dates: start: 20200616, end: 20200709
  106. SODIUM POTASSIUM MAGNESIUM CALCIUM AND GLUCOSE [Concomitant]
     Dates: start: 20200803, end: 20200805
  107. POTASSIUM CHLORIDE. [Concomitant]
     Active Substance: POTASSIUM CHLORIDE
     Dates: start: 20200806, end: 20200807
  108. INSULIN [Concomitant]
     Active Substance: INSULIN NOS
     Dates: start: 20200719, end: 20200719
  109. INSULIN [Concomitant]
     Active Substance: INSULIN NOS
     Dosage: 16 U
     Dates: start: 20200613, end: 20200613
  110. INSULIN [Concomitant]
     Active Substance: INSULIN NOS
     Dates: start: 20200730, end: 20200803
  111. INSULIN [Concomitant]
     Active Substance: INSULIN NOS
     Dates: start: 20200703, end: 20200709
  112. INSULIN [Concomitant]
     Active Substance: INSULIN NOS
     Dates: start: 20200719, end: 20200723
  113. MANNITOL. [Concomitant]
     Active Substance: MANNITOL
     Dates: start: 20200711, end: 20200711
  114. MANNITOL. [Concomitant]
     Active Substance: MANNITOL
     Dates: start: 20200804, end: 20200805
  115. VITAMIN C [Concomitant]
     Active Substance: ASCORBIC ACID
     Dates: start: 20200616, end: 20200616
  116. OCTREOTIDE ACETATE. [Concomitant]
     Active Substance: OCTREOTIDE ACETATE
     Dates: start: 20200701, end: 20200701
  117. HYDROMORPHONE HYDROCHLORIDE. [Concomitant]
     Active Substance: HYDROMORPHONE HYDROCHLORIDE
     Dates: start: 20200719, end: 20200719
  118. HYDROMORPHONE HYDROCHLORIDE. [Concomitant]
     Active Substance: HYDROMORPHONE HYDROCHLORIDE
     Dates: start: 20200721, end: 20200724
  119. HUMAN ALBUMIN [Concomitant]
     Active Substance: ALBUMIN HUMAN
     Dates: start: 20200726, end: 20200726
  120. DOPAMINE HYDROCHLORIDE. [Concomitant]
     Active Substance: DOPAMINE HYDROCHLORIDE
     Dates: start: 20200807, end: 20200807
  121. FENTANYL TRANSDERMAL SYSTEM [Concomitant]
     Active Substance: FENTANYL
     Dates: start: 20200803, end: 20200807
  122. ZOLEDRONIC ACID [Concomitant]
     Active Substance: ZOLEDRONIC ACID
     Dates: start: 20200621, end: 20200621
  123. SODIUM VALPROATE [Concomitant]
     Active Substance: VALPROATE SODIUM
     Dates: start: 202003
  124. FAT EMULSION, AMINO ACIDS (17) AND GLUCOSE (11%) [Concomitant]
     Dates: start: 20200611, end: 20200611
  125. FAT EMULSION, AMINO ACIDS (17) AND GLUCOSE (11%) [Concomitant]
     Dates: start: 20200711, end: 20200722
  126. POTASSIUM CHLORIDE. [Concomitant]
     Active Substance: POTASSIUM CHLORIDE
     Dates: start: 20200612, end: 20200612
  127. POTASSIUM CHLORIDE. [Concomitant]
     Active Substance: POTASSIUM CHLORIDE
     Dates: start: 20200801, end: 20200801
  128. POTASSIUM CHLORIDE. [Concomitant]
     Active Substance: POTASSIUM CHLORIDE
     Dates: start: 20200613, end: 20200613
  129. INSULIN [Concomitant]
     Active Substance: INSULIN NOS
     Dates: start: 20200723, end: 20200725
  130. AMBROXOL HYDROCHLORIDE [Concomitant]
     Active Substance: AMBROXOL HYDROCHLORIDE
     Dates: start: 20200729, end: 20200807
  131. AMBROXOL HYDROCHLORIDE [Concomitant]
     Active Substance: AMBROXOL HYDROCHLORIDE
     Dates: start: 20200711, end: 20200725
  132. OCTREOTIDE ACETATE. [Concomitant]
     Active Substance: OCTREOTIDE ACETATE
     Dates: start: 20200624, end: 20200630
  133. COMPOUND IPRATROPIUM BROMIDE [Concomitant]
     Active Substance: IPRATROPIUM BROMIDE
     Dates: start: 20200728, end: 20200728
  134. DEXAMETHASONE SODIUM PHOSPHATE. [Concomitant]
     Active Substance: DEXAMETHASONE SODIUM PHOSPHATE
     Dates: start: 20200711
  135. HYDROMORPHONE HYDROCHLORIDE. [Concomitant]
     Active Substance: HYDROMORPHONE HYDROCHLORIDE
     Dates: start: 20200728, end: 20200728
  136. FENTANYL TRANSDERMAL SYSTEM [Concomitant]
     Active Substance: FENTANYL
     Dates: start: 20200803, end: 20200807
  137. ORNIDAZOLE;SODIUM CHLORIDE [Concomitant]
     Dates: start: 20200613, end: 20200620
  138. SODIUM POTASSIUM MAGNESIUM CALCIUM AND GLUCOSE [Concomitant]
     Dates: start: 20200723, end: 20200725

REACTIONS (1)
  - Gastrointestinal perforation [Not Recovered/Not Resolved]

NARRATIVE: CASE EVENT DATE: 20200610
